FAERS Safety Report 5241492-8 (Version None)
Quarter: 2007Q1

REPORT INFORMATION
  Report Type: 
  Country: None (occurrence: None)
  Receive Date: 20070220
  Receipt Date: 20070214
  Transmission Date: 20070707
  Serious: Yes (Other)
  Sender: FDA-Public Use
  Company Number: IT-GLAXOSMITHKLINE-B0447006A

PATIENT
  Age: 44 Year
  Sex: Male

DRUGS (2)
  1. VALACYCLOVIR HCL [Suspect]
     Indication: VARICELLA
     Dosage: 1G THREE TIMES PER DAY
     Route: 048
     Dates: start: 20061106, end: 20061107
  2. NO CONCURRENT MEDICATIONS [Concomitant]

REACTIONS (2)
  - DIZZINESS [None]
  - SYNCOPE [None]
